FAERS Safety Report 23554628 (Version 1)
Quarter: 2024Q1

REPORT INFORMATION
  Report Type: Spontaneous
  Country: US (occurrence: US)
  Receive Date: 20240222
  Receipt Date: 20240222
  Transmission Date: 20240410
  Serious: Yes (Hospitalization, Other)
  Sender: FDA-Public Use
  Company Number: US-Kiniksa Pharmaceuticals Ltd.-2023KPU000437

PATIENT
  Age: 51 Year
  Sex: Male

DRUGS (7)
  1. ARCALYST [Suspect]
     Active Substance: RILONACEPT
     Indication: Pericarditis
     Route: 058
     Dates: start: 20210923, end: 202212
  2. ARCALYST [Suspect]
     Active Substance: RILONACEPT
     Route: 058
  3. ARCALYST [Suspect]
     Active Substance: RILONACEPT
     Route: 058
     Dates: start: 20210930, end: 202112
  4. COLCHICINE [Concomitant]
     Active Substance: COLCHICINE
     Indication: Product used for unknown indication
  5. DEXAMETHASONE [Concomitant]
     Active Substance: DEXAMETHASONE
     Indication: Product used for unknown indication
  6. ASPIRIN [Concomitant]
     Active Substance: ASPIRIN
     Indication: Product used for unknown indication
  7. UNSPECIFIED INGREDIENT [Concomitant]
     Active Substance: UNSPECIFIED INGREDIENT
     Indication: Product used for unknown indication

REACTIONS (7)
  - COVID-19 [Unknown]
  - Pericarditis [Unknown]
  - Pericarditis [Unknown]
  - Pericarditis [Unknown]
  - Product dose omission issue [Unknown]
  - Pericarditis [Unknown]
  - Laboratory test [Unknown]

NARRATIVE: CASE EVENT DATE: 20220101
